FAERS Safety Report 7260383-4 (Version None)
Quarter: 2011Q1

REPORT INFORMATION
  Report Type: 
  Country: None (occurrence: None)
  Receive Date: 20110130
  Receipt Date: 20101020
  Transmission Date: 20110831
  Serious: No
  Sender: FDA-Public Use
  Company Number: US-ABBOTT-10P-163-0679662-00

PATIENT
  Sex: Female
  Weight: 127.12 kg

DRUGS (8)
  1. SYNTHROID [Concomitant]
     Indication: HYPOTHYROIDISM
  2. LIPITOR [Concomitant]
     Indication: BLOOD CHOLESTEROL INCREASED
  3. TRILIPIX [Concomitant]
     Indication: BLOOD CHOLESTEROL INCREASED
  4. SOTALOL HCL [Concomitant]
     Indication: ATRIAL FIBRILLATION
  5. HUMIRA [Suspect]
     Indication: PSORIATIC ARTHROPATHY
  6. HUMIRA [Suspect]
     Indication: PSORIASIS
     Dates: start: 20091201
  7. WARFARIN [Concomitant]
     Indication: ATRIAL FIBRILLATION
     Dosage: 5MG FIVE DAYS A WEEK, EXCEPT WED. AND FRI.THEN TAKES 7.5 MG
  8. VICTOZA [Concomitant]
     Indication: DIABETES MELLITUS

REACTIONS (3)
  - DRUG DOSE OMISSION [None]
  - ARTHRITIS [None]
  - OEDEMA PERIPHERAL [None]
